FAERS Safety Report 5479494-9 (Version None)
Quarter: 2007Q3

REPORT INFORMATION
  Report Type: 
  Country: None (occurrence: None)
  Receive Date: 20070913
  Receipt Date: 20070411
  Transmission Date: 20080115
  Serious: Yes (Other)
  Sender: FDA-Public Use
  Company Number: 35910

PATIENT
  Sex: Female
  Weight: 104.3273 kg

DRUGS (1)
  1. PACLITAXEL [Suspect]
     Indication: ENDOMETRIAL CANCER
     Dosage: 350MG/IV VIA PORT-A-CATH
     Route: 042
     Dates: start: 20070410

REACTIONS (1)
  - EXTRAVASATION [None]
